FAERS Safety Report 12327006 (Version 1)
Quarter: 2016Q2

REPORT INFORMATION
  Report Type: Spontaneous
  Country: NL (occurrence: NL)
  Receive Date: 20160503
  Receipt Date: 20160503
  Transmission Date: 20160815
  Serious: Yes (Other)
  Sender: FDA-Public Use
  Company Number: NL-BEH-2016061799

PATIENT
  Sex: Female

DRUGS (1)
  1. HIZENTRA [Suspect]
     Active Substance: HUMAN IMMUNOGLOBULIN G
     Indication: RENAL FAILURE
     Dosage: WRONG BATCH NO. 436333300010 ALSO REPORTED, SIC!
     Dates: start: 20160315

REACTIONS (5)
  - Injection site swelling [Unknown]
  - Nonspecific reaction [Unknown]
  - Pyrexia [Unknown]
  - Chills [Unknown]
  - Cyanosis [Recovering/Resolving]
